FAERS Safety Report 5365812-9 (Version None)
Quarter: 2007Q2

REPORT INFORMATION
  Report Type: 
  Country: None (occurrence: None)
  Receive Date: 20070619
  Receipt Date: 20070612
  Transmission Date: 20071010
  Serious: Yes (Death)
  Sender: FDA-Public Use
  Company Number: 163-20785-07051060

PATIENT
  Age: 81 Year
  Sex: Male

DRUGS (1)
  1. THALOMID [Suspect]
     Indication: MULTIPLE MYELOMA
     Dosage: 50 MG, QHS; ORAL
     Route: 048
     Dates: start: 20061111, end: 20070319

REACTIONS (3)
  - DISEASE PROGRESSION [None]
  - HYPERKALAEMIA [None]
  - RENAL FAILURE CHRONIC [None]
